FAERS Safety Report 10091091 (Version 1)
Quarter: 2014Q2

REPORT INFORMATION
  Report Type: Spontaneous
  Country: US (occurrence: US)
  Receive Date: 20140421
  Receipt Date: 20140421
  Transmission Date: 20141212
  Serious: No
  Sender: FDA-Public Use
  Company Number: US-GILEAD-2012-0060054

PATIENT
  Age: 53 Year
  Sex: Male

DRUGS (2)
  1. LETAIRIS [Suspect]
     Indication: PRODUCT USED FOR UNKNOWN INDICATION
     Dosage: 10 MG, UNK
     Route: 048
     Dates: start: 201207
  2. LETAIRIS [Suspect]
     Dosage: UNK MG, UNK
     Route: 048
     Dates: start: 20120329, end: 201207

REACTIONS (4)
  - Initial insomnia [Unknown]
  - Headache [Unknown]
  - Abdominal discomfort [Unknown]
  - Peripheral swelling [Unknown]
